FAERS Safety Report 10480507 (Version 1)
Quarter: 2014Q3

REPORT INFORMATION
  Report Type: Report from Study
  Country: US (occurrence: US)
  Receive Date: 20140929
  Receipt Date: 20140929
  Transmission Date: 20150326
  Serious: Yes (Life-Threatening, Hospitalization, Other)
  Sender: FDA-Public Use
  Company Number: US-ROCHE-1422682

PATIENT
  Sex: Female
  Weight: 86.26 kg

DRUGS (33)
  1. VENLAFAXINE ER [Concomitant]
     Active Substance: VENLAFAXINE HYDROCHLORIDE
     Route: 065
  2. LOSARTAN/HCTZ [Concomitant]
     Active Substance: HYDROCHLOROTHIAZIDE\LOSARTAN
     Dosage: 100/25 MG IN AM
     Route: 065
  3. TOPROL XL [Concomitant]
     Active Substance: METOPROLOL SUCCINATE
     Indication: HYPERTENSION
     Route: 065
  4. PREMARIN [Concomitant]
     Active Substance: ESTROGENS, CONJUGATED
     Indication: MENOPAUSAL SYMPTOMS
     Route: 065
  5. SYNTHROID [Concomitant]
     Active Substance: LEVOTHYROXINE SODIUM
     Route: 065
  6. LOSARTAN [Concomitant]
     Active Substance: LOSARTAN
     Route: 065
  7. IBUPROFEN. [Concomitant]
     Active Substance: IBUPROFEN
     Dosage: 1-2 TID
     Route: 065
  8. CEPHALEXIN. [Concomitant]
     Active Substance: CEPHALEXIN
     Route: 065
  9. ZOCOR [Concomitant]
     Active Substance: SIMVASTATIN
     Indication: HYPERLIPIDAEMIA
     Dosage: AT NIGHT
     Route: 065
  10. LOSARTAN/HCTZ [Concomitant]
     Active Substance: HYDROCHLOROTHIAZIDE\LOSARTAN
     Dosage: 50/12.25 MG
     Route: 065
  11. PROTONIX (UNITED STATES) [Concomitant]
     Indication: GASTROOESOPHAGEAL REFLUX DISEASE
     Route: 065
  12. PROBENECID. [Concomitant]
     Active Substance: PROBENECID
     Route: 065
  13. HYDROCORTISONE. [Concomitant]
     Active Substance: HYDROCORTISONE
     Route: 065
  14. NUTROPIN AQ [Suspect]
     Active Substance: SOMATROPIN
     Indication: HYPOPITUITARISM
     Route: 058
     Dates: start: 20110831
  15. NUTROPIN AQ [Suspect]
     Active Substance: SOMATROPIN
     Route: 058
  16. PROBENECID. [Concomitant]
     Active Substance: PROBENECID
     Indication: GOUT
     Route: 065
  17. LAMOTRIGINE. [Concomitant]
     Active Substance: LAMOTRIGINE
     Route: 065
  18. CYTOMEL [Concomitant]
     Active Substance: LIOTHYRONINE SODIUM
     Route: 065
  19. CORTEF [Suspect]
     Active Substance: HYDROCORTISONE
     Indication: ADDISON^S DISEASE
     Route: 048
  20. CELEBREX [Concomitant]
     Active Substance: CELECOXIB
     Route: 065
  21. BACTRIM [Suspect]
     Active Substance: SULFAMETHOXAZOLE\TRIMETHOPRIM
     Indication: LOCALISED INFECTION
     Route: 065
  22. LASIX [Concomitant]
     Active Substance: FUROSEMIDE
     Route: 065
  23. WELLBUTRIN [Concomitant]
     Active Substance: BUPROPION HYDROCHLORIDE
     Route: 065
  24. PROTONIX (UNITED STATES) [Concomitant]
     Route: 065
  25. NORDITROPIN [Concomitant]
     Active Substance: SOMATROPIN
     Route: 058
  26. ROPINIROLE. [Concomitant]
     Active Substance: ROPINIROLE
     Route: 065
  27. NUTROPIN AQ [Suspect]
     Active Substance: SOMATROPIN
     Indication: HYPOTHALAMO-PITUITARY DISORDER
     Route: 058
     Dates: start: 2008
  28. NEURONTIN (UNITED STATES) [Concomitant]
     Dosage: UPTO 5 TIMES A DAY
     Route: 065
  29. LORTAB [Concomitant]
     Active Substance: ACETAMINOPHEN\HYDROCODONE BITARTRATE
     Dosage: 10/500 MG PRN 2- 3 TABS DAILY
     Route: 065
  30. SOMA [Concomitant]
     Active Substance: CARISOPRODOL
     Dosage: AS NEEDED
     Route: 065
  31. SYNTHROID [Concomitant]
     Active Substance: LEVOTHYROXINE SODIUM
     Dosage: 150 MCG QD
     Route: 065
  32. TOLMETIN SODIUM. [Concomitant]
     Active Substance: TOLMETIN SODIUM
     Route: 065
  33. VERAPAMIL [Concomitant]
     Active Substance: VERAPAMIL HYDROCHLORIDE
     Route: 065

REACTIONS (20)
  - Urinary tract infection [Recovered/Resolved]
  - Asthenia [Unknown]
  - Musculoskeletal pain [Unknown]
  - Foot fracture [Unknown]
  - Weight decreased [Unknown]
  - Neuropathy peripheral [Unknown]
  - Localised infection [Unknown]
  - Insomnia [Unknown]
  - Sinusitis [Unknown]
  - Clostridium difficile colitis [Recovered/Resolved]
  - Bronchitis [Recovered/Resolved]
  - Constipation [Unknown]
  - Diarrhoea [Unknown]
  - Memory impairment [Unknown]
  - Trichorrhexis [Unknown]
  - Pneumonia [Recovered/Resolved]
  - Foot deformity [Unknown]
  - Drug ineffective [Unknown]
  - Poor quality sleep [Unknown]
  - Alopecia [Unknown]
